FAERS Safety Report 5828828-1 (Version None)
Quarter: 2008Q3

REPORT INFORMATION
  Report Type: 
  Country: None (occurrence: None)
  Receive Date: 20080731
  Receipt Date: 20080724
  Transmission Date: 20090109
  Serious: Yes (Death, Other)
  Sender: FDA-Public Use
  Company Number: FR-GENENTECH-265193

PATIENT
  Age: 59 Year
  Sex: Male

DRUGS (5)
  1. ACTIVASE [Suspect]
     Indication: BASILAR ARTERY THROMBOSIS
     Dosage: 20 MG, UNK
     Route: 013
  2. ACTIVASE [Suspect]
     Dosage: 20 MG, UNK
     Route: 013
  3. ACTIVASE [Suspect]
     Dosage: 10 MG, UNK
     Route: 013
  4. HEPARIN [Suspect]
     Indication: BASILAR ARTERY THROMBOSIS
     Dosage: 50 IU/KG, SINGLE
     Route: 040
  5. HEPARIN [Suspect]
     Dosage: 200 IU/KG, UNK
     Route: 042

REACTIONS (3)
  - DEATH [None]
  - DRUG INEFFECTIVE [None]
  - HAEMORRHAGIC TRANSFORMATION STROKE [None]
